FAERS Safety Report 16473122 (Version 1)
Quarter: 2019Q2

REPORT INFORMATION
  Report Type: Spontaneous
  Country: US (occurrence: US)
  Receive Date: 20190515
  Receipt Date: 20190515
  Transmission Date: 20190711
  Serious: Yes (Death)
  Sender: FDA-Public Use
  Company Number: None

PATIENT
  Age: 86 Year
  Sex: Male

DRUGS (14)
  1. METOPROLOL TARTRATE. [Concomitant]
     Active Substance: METOPROLOL TARTRATE
  2. ELIQUIS [Concomitant]
     Active Substance: APIXABAN
  3. FINASTERIDE. [Concomitant]
     Active Substance: FINASTERIDE
  4. TAMSULOSIN [Concomitant]
     Active Substance: TAMSULOSIN
  5. LIDOCAINE. [Concomitant]
     Active Substance: LIDOCAINE
  6. ENTRESTO [Concomitant]
     Active Substance: SACUBITRIL\VALSARTAN
  7. PROSCAR [Concomitant]
     Active Substance: FINASTERIDE
  8. IPRATROPIUM/SOL [Concomitant]
  9. GABAPENTIN. [Concomitant]
     Active Substance: GABAPENTIN
  10. LISINOPRIL. [Concomitant]
     Active Substance: LISINOPRIL
  11. ESBRIET [Suspect]
     Active Substance: PIRFENIDONE
     Indication: PULMONARY FIBROSIS
     Route: 048
     Dates: start: 20190209
  12. ATORVASTATIN [Concomitant]
     Active Substance: ATORVASTATIN
  13. METFORMIN [Concomitant]
     Active Substance: METFORMIN HYDROCHLORIDE
  14. TORSEMIDE. [Concomitant]
     Active Substance: TORSEMIDE

REACTIONS (1)
  - Death [None]

NARRATIVE: CASE EVENT DATE: 20190424
